FAERS Safety Report 9038459 (Version 1)
Quarter: 2013Q1

REPORT INFORMATION
  Report Type: Report from Study
  Country: US (occurrence: US)
  Receive Date: 20130129
  Receipt Date: 20130129
  Transmission Date: 20140127
  Serious: Yes (Hospitalization)
  Sender: FDA-Public Use
  Company Number: US-BAXTER-2013BAX003084

PATIENT
  Age: 54 None
  Sex: Female
  Weight: 55.91 kg

DRUGS (1)
  1. ARALAST NP [Suspect]
     Indication: ALPHA-1 ANTI-TRYPSIN DEFICIENCY
     Route: 042
     Dates: start: 2005

REACTIONS (6)
  - Thrombosis [Recovered/Resolved]
  - Epistaxis [Recovered/Resolved]
  - Malaise [Not Recovered/Not Resolved]
  - Abdominal pain upper [Not Recovered/Not Resolved]
  - Thrombosis in device [Recovered/Resolved]
  - Medical device complication [Not Recovered/Not Resolved]
